FAERS Safety Report 22593891 (Version 1)
Quarter: 2023Q2

REPORT INFORMATION
  Report Type: Spontaneous
  Country: US (occurrence: None)
  Receive Date: 20230612
  Receipt Date: 20230612
  Transmission Date: 20230721
  Serious: Yes (Other)
  Sender: FDA-Public Use
  Company Number: None

PATIENT
  Age: 73 Year
  Sex: Female
  Weight: 54.43 kg

DRUGS (17)
  1. APRACLONIDINE [Suspect]
     Active Substance: APRACLONIDINE HYDROCHLORIDE
     Indication: Skin wrinkling
     Dosage: FREQUENCY : TWICE A DAY;?
     Route: 047
     Dates: start: 20230126, end: 20230317
  2. BIMATOPROST [Concomitant]
     Active Substance: BIMATOPROST
  3. DORZOLAMIDE\TIMOLOL [Concomitant]
     Active Substance: DORZOLAMIDE\TIMOLOL
  4. ADVAIR HFA [Concomitant]
     Active Substance: FLUTICASONE PROPIONATE\SALMETEROL XINAFOATE
  5. HIZENTRA [Concomitant]
     Active Substance: HUMAN IMMUNOGLOBULIN G
  6. OFLOXACIN [Concomitant]
     Active Substance: OFLOXACIN
  7. PROLIA [Concomitant]
     Active Substance: DENOSUMAB
  8. SULFAMETHOXAZOLE\TRIMETHOPRIM [Concomitant]
     Active Substance: SULFAMETHOXAZOLE\TRIMETHOPRIM
  9. BUDESONIDE [Concomitant]
     Active Substance: BUDESONIDE
  10. ESTROGEN RING (VAGINAL) [Concomitant]
  11. NEXIUM [Concomitant]
     Active Substance: ESOMEPRAZOLE MAGNESIUM
  12. PEPCID [Concomitant]
     Active Substance: FAMOTIDINE
  13. FLORASTOR (PROBIOTIC) [Concomitant]
  14. SCHIFF MOVE FREE [Concomitant]
     Active Substance: DIETARY SUPPLEMENT
  15. VITAMIN D NOS [Concomitant]
     Active Substance: VITAMIN D NOS
  16. VIT B SUPPLEMENT COMPLEX [Concomitant]
  17. TYLENOL [Concomitant]
     Active Substance: ACETAMINOPHEN

REACTIONS (7)
  - Eye pain [None]
  - Ocular hyperaemia [None]
  - Eye irritation [None]
  - Vision blurred [None]
  - Eye infection [None]
  - Eye irritation [None]
  - Drug ineffective [None]

NARRATIVE: CASE EVENT DATE: 20230126
